FAERS Safety Report 6068403-X (Version None)
Quarter: 2009Q1

REPORT INFORMATION
  Report Type: 
  Country: None (occurrence: None)
  Receive Date: 20090206
  Receipt Date: 20090204
  Transmission Date: 20090719
  Serious: Yes (Hospitalization, Other)
  Sender: FDA-Public Use
  Company Number: GB-TEVA-184934ISR

PATIENT

DRUGS (2)
  1. IBUPROFEN TABLETS [Suspect]
  2. ALLIUM SATIVUM [Suspect]

REACTIONS (2)
  - BLEEDING TIME PROLONGED [None]
  - HAEMORRHAGE INTRACRANIAL [None]
